FAERS Safety Report 6973292-2 (Version None)
Quarter: 2010Q3

REPORT INFORMATION
  Report Type: 
  Country: None (occurrence: None)
  Receive Date: 20100909
  Receipt Date: 20100903
  Transmission Date: 20110219
  Serious: Yes (Death)
  Sender: FDA-Public Use
  Company Number: PHEH2009US15470

PATIENT
  Sex: Male
  Weight: 82.54 kg

DRUGS (5)
  1. EXJADE [Suspect]
     Indication: IRON OVERLOAD
     Dosage: 1250 MG, DAILY
     Route: 048
     Dates: start: 20090929
  2. BENADRYL [Concomitant]
     Indication: PRURITUS
     Dosage: UNK
  3. LASIX [Concomitant]
     Indication: OEDEMA
     Dosage: 40 / DAILY
     Route: 048
     Dates: start: 20090915
  4. SPIRONOLACTONE [Concomitant]
     Indication: OEDEMA
     Dosage: 50 / B.I.D.
     Dates: start: 20090525
  5. VICODIN ES [Concomitant]
     Indication: PAIN
     Dosage: UNK
     Route: 048

REACTIONS (4)
  - ABDOMINAL PAIN [None]
  - DEATH [None]
  - DIARRHOEA [None]
  - PRURITUS [None]
